FAERS Safety Report 5737939-0 (Version None)
Quarter: 2008Q2

REPORT INFORMATION
  Report Type: 
  Country: None (occurrence: None)
  Receive Date: 20080514
  Receipt Date: 20080513
  Transmission Date: 20081010
  Serious: Yes (Other)
  Sender: FDA-Public Use
  Company Number: ZA-TEVA-171501ISR

PATIENT
  Age: 24 Year
  Sex: Male

DRUGS (7)
  1. VINCRISTINE [Suspect]
     Indication: HODGKIN'S DISEASE
  2. DOXORUBICIN HCL [Suspect]
     Indication: HODGKIN'S DISEASE
  3. VINBLASTINE SULFATE [Suspect]
     Indication: HODGKIN'S DISEASE
  4. BLEOMYCIN SULFATE [Suspect]
     Indication: HODGKIN'S DISEASE
  5. CHLORMETHINE [Suspect]
     Indication: HODGKIN'S DISEASE
  6. PROCARBAZINE [Suspect]
     Indication: HODGKIN'S DISEASE
  7. PREDNISONE TAB [Suspect]
     Indication: HODGKIN'S DISEASE

REACTIONS (2)
  - FEBRILE NEUTROPENIA [None]
  - MALARIA [None]
